FAERS Safety Report 9490517 (Version 1)
Quarter: 2013Q3

REPORT INFORMATION
  Report Type: Spontaneous
  Country: NL (occurrence: None)
  Receive Date: 20130826
  Receipt Date: 20130826
  Transmission Date: 20140515
  Serious: Yes (Death)
  Sender: FDA-Public Use
  Company Number: KAD201308-001046

PATIENT
  Age: 3 Month
  Sex: 0

DRUGS (1)
  1. AMPHOTERICIN B [Suspect]
     Dosage: (2 DOSES)

REACTIONS (7)
  - Drug administration error [None]
  - Overdose [None]
  - Bradycardia [None]
  - Hyperkalaemia [None]
  - Metabolic acidosis [None]
  - Circumstance or information capable of leading to medication error [None]
  - Product name confusion [None]
